FAERS Safety Report 9442229 (Version 19)
Quarter: 2016Q4

REPORT INFORMATION
  Report Type: Report from Study
  Country: CA (occurrence: CA)
  Receive Date: 20130806
  Receipt Date: 20161220
  Transmission Date: 20170207
  Serious: Yes (Hospitalization, Other)
  Sender: FDA-Public Use
  Company Number: CA-INCYTE CORPORATION-2012IN002275

PATIENT
  Age: 84 Year
  Sex: Male

DRUGS (6)
  1. JAKAVI [Suspect]
     Active Substance: RUXOLITINIB
     Dosage: 15 MG, BID
     Route: 048
     Dates: end: 20161201
  2. FOSAMAX [Concomitant]
     Active Substance: ALENDRONATE SODIUM
     Indication: PRODUCT USED FOR UNKNOWN INDICATION
     Dosage: 1 DF, QD
     Route: 065
     Dates: end: 20161201
  3. JAKAVI [Suspect]
     Active Substance: RUXOLITINIB
     Indication: MYELOFIBROSIS
     Dosage: 10 MG, BID
     Route: 048
     Dates: start: 20120802
  4. SYNTHROID [Concomitant]
     Active Substance: LEVOTHYROXINE SODIUM
     Indication: PRODUCT USED FOR UNKNOWN INDICATION
     Dosage: UNK
     Route: 065
     Dates: end: 20161201
  5. MULTIVITAMINS [Concomitant]
     Active Substance: VITAMINS
     Indication: PRODUCT USED FOR UNKNOWN INDICATION
     Dosage: UNK
     Route: 065
     Dates: end: 20161201
  6. FLOMAX [Concomitant]
     Active Substance: TAMSULOSIN HYDROCHLORIDE
     Indication: PRODUCT USED FOR UNKNOWN INDICATION
     Dosage: 1 DF, QD
     Route: 065
     Dates: end: 20161201

REACTIONS (38)
  - Peripheral swelling [Not Recovered/Not Resolved]
  - Arthralgia [Unknown]
  - Weight increased [Unknown]
  - Cellulitis [Not Recovered/Not Resolved]
  - Epistaxis [Unknown]
  - Back pain [Unknown]
  - Movement disorder [Unknown]
  - Nausea [Unknown]
  - Constipation [Unknown]
  - Platelet count decreased [Unknown]
  - Increased tendency to bruise [Unknown]
  - Splenomegaly [Unknown]
  - Anaemia [Unknown]
  - Hypersomnia [Unknown]
  - Renal impairment [Unknown]
  - Abdominal distension [Unknown]
  - Bronchitis [Unknown]
  - Asthenia [Unknown]
  - Feeling abnormal [Unknown]
  - Feeling cold [Unknown]
  - Bone pain [Unknown]
  - Fall [Unknown]
  - Eating disorder [Unknown]
  - Therapy non-responder [Unknown]
  - Rotator cuff syndrome [Unknown]
  - Pigmentation disorder [Unknown]
  - Muscle spasms [Unknown]
  - Rash papulosquamous [Unknown]
  - Peripheral coldness [Unknown]
  - Diarrhoea [Unknown]
  - Dry skin [Unknown]
  - Decreased appetite [Unknown]
  - Gout [Not Recovered/Not Resolved]
  - Skin discolouration [Unknown]
  - Malaise [Unknown]
  - Sleep disorder [Unknown]
  - Arthropathy [Unknown]
  - Dizziness postural [Unknown]

NARRATIVE: CASE EVENT DATE: 20130908
